FAERS Safety Report 7721027-8 (Version None)
Quarter: 2011Q3

REPORT INFORMATION
  Report Type: 
  Country: None (occurrence: None)
  Receive Date: 20110831
  Receipt Date: 20110419
  Transmission Date: 20111222
  Serious: No
  Sender: FDA-Public Use
  Company Number: US-BAYER-2011-034807

PATIENT
  Age: 45 Year
  Sex: Female

DRUGS (2)
  1. MIRENA [Suspect]
     Dosage: 20 ?G, CONT
     Dates: start: 20110309, end: 20110419
  2. MIRENA [Suspect]
     Indication: CONTRACEPTION
     Dosage: 20 ?G, CONT
     Dates: start: 20060614, end: 20110301

REACTIONS (7)
  - ACNE [None]
  - ABDOMINAL DISTENSION [None]
  - HEADACHE [None]
  - BREAST TENDERNESS [None]
  - WEIGHT INCREASED [None]
  - BACK PAIN [None]
  - RASH [None]
